FAERS Safety Report 6062808-9 (Version None)
Quarter: 2009Q1

REPORT INFORMATION
  Report Type: 
  Country: None (occurrence: None)
  Receive Date: 20090202
  Receipt Date: 20090202
  Transmission Date: 20090719
  Serious: Yes (Hospitalization, Other)
  Sender: FDA-Public Use
  Company Number: None

PATIENT
  Age: 53 Year
  Sex: Female
  Weight: 90.7194 kg

DRUGS (2)
  1. ENBREL [Suspect]
     Indication: RHEUMATOID ARTHRITIS
     Dosage: SURECLICK 50MG WEEKLY IM
     Route: 030
     Dates: start: 20080323, end: 20080408
  2. ENBREL [Suspect]
     Indication: RHEUMATOID ARTHRITIS
     Dosage: SURECLICK 50MG WEEKLY IM
     Route: 030
     Dates: start: 20080401, end: 20080415

REACTIONS (5)
  - BREAST ABSCESS [None]
  - DRUG RESISTANCE [None]
  - DYSPNOEA [None]
  - OEDEMA MOUTH [None]
  - SWELLING FACE [None]
